FAERS Safety Report 4802165-6 (Version None)
Quarter: 2005Q4

REPORT INFORMATION
  Report Type: 
  Country: None (occurrence: None)
  Receive Date: 20051017
  Receipt Date: 20051017
  Transmission Date: 20060501
  Serious: Yes (Other)
  Sender: FDA-Public Use
  Company Number: None

PATIENT
  Age: 40 Year
  Sex: Female
  Weight: 59 kg

DRUGS (1)
  1. LIPITOR [Suspect]
     Indication: TYPE IIA HYPERLIPIDAEMIA
     Dosage: 1 40MG TABLET 1 DAILY AT NIGHT PO
     Route: 048
     Dates: start: 20040728, end: 20051015

REACTIONS (18)
  - ABNORMAL DREAMS [None]
  - AMNESIA [None]
  - BRAIN NEOPLASM [None]
  - DIZZINESS [None]
  - EYE IRRITATION [None]
  - EYE PAIN [None]
  - FLATULENCE [None]
  - HYPERTENSION [None]
  - HYPOAESTHESIA [None]
  - MYALGIA [None]
  - NAUSEA [None]
  - NIGHT SWEATS [None]
  - PARAESTHESIA [None]
  - SYNCOPE [None]
  - THINKING ABNORMAL [None]
  - TREMOR [None]
  - VERTIGO [None]
  - VISION BLURRED [None]
